FAERS Safety Report 6791283-1 (Version None)
Quarter: 2010Q2

REPORT INFORMATION
  Report Type: 
  Country: None (occurrence: None)
  Receive Date: 20100520
  Receipt Date: 20090618
  Transmission Date: 20101027
  Serious: Yes (Other)
  Sender: FDA-Public Use
  Company Number: 2009229480

PATIENT
  Age: 51 Year
  Sex: Female
  Weight: 91 kg

DRUGS (6)
  1. PROVERA [Suspect]
     Indication: HORMONE REPLACEMENT THERAPY
     Dosage: 2.5-10 MG, ORAL
     Route: 048
     Dates: start: 19900101, end: 19950401
  2. PREMARIN [Suspect]
     Indication: HORMONE REPLACEMENT THERAPY
     Dosage: 0.625 MG
     Dates: start: 19900101, end: 19950401
  3. PREMARIN [Suspect]
     Indication: HORMONE REPLACEMENT THERAPY
     Dosage: 0.625 MG
     Dates: start: 19960730, end: 19960801
  4. PREMPRO [Suspect]
     Indication: HORMONE REPLACEMENT THERAPY
     Dosage: 0.625/2.5MG
     Dates: start: 19950401, end: 19980101
  5. WILD YAM (WILD YAM) CREAM [Suspect]
     Indication: HORMONE REPLACEMENT THERAPY
     Dosage: 60 G
     Dates: start: 19990210, end: 19990808
  6. ZIAC [Concomitant]

REACTIONS (1)
  - DEEP VEIN THROMBOSIS [None]
